FAERS Safety Report 18445799 (Version 1)
Quarter: 2020Q4

REPORT INFORMATION
  Report Type: Spontaneous
  Country: US (occurrence: US)
  Receive Date: 20201030
  Receipt Date: 20201030
  Transmission Date: 20210114
  Serious: Yes (Other)
  Sender: FDA-Public Use
  Company Number: US-BAYER-2020-227541

PATIENT
  Age: 80 Year
  Sex: Male

DRUGS (1)
  1. XOFIGO [Suspect]
     Active Substance: RADIUM RA-223 DICHLORIDE
     Dosage: DAILY DOSE 55 KBQ
     Dates: start: 20200923, end: 20200923

REACTIONS (8)
  - Peripheral swelling [None]
  - Arthralgia [None]
  - Hypersomnia [None]
  - Nausea [None]
  - Oedema [None]
  - Arthralgia [None]
  - Urticaria chronic [None]
  - Feeling abnormal [None]

NARRATIVE: CASE EVENT DATE: 20200923
